FAERS Safety Report 6172669-5 (Version None)
Quarter: 2009Q2

REPORT INFORMATION
  Report Type: 
  Country: None (occurrence: None)
  Receive Date: 20090430
  Receipt Date: 20090422
  Transmission Date: 20091009
  Serious: Yes (Other)
  Sender: FDA-Public Use
  Company Number: US-JNJFOC-20090405887

PATIENT
  Age: 60 Year
  Sex: Female
  Weight: 77.11 kg

DRUGS (7)
  1. TYLENOL (CAPLET) [Suspect]
     Route: 048
  2. TYLENOL (CAPLET) [Suspect]
     Indication: ARTHRITIS
     Dosage: 1300 MG, 2-3 TIMES A DAY FOR 3-4 MONTHS
     Route: 048
  3. PRAVASTATIN [Suspect]
     Indication: BLOOD CHOLESTEROL
  4. GLUCOSAMINE [Concomitant]
     Indication: MEDICAL DIET
  5. MULTI-VITAMIN [Concomitant]
     Indication: MEDICAL DIET
  6. FISH OIL [Concomitant]
     Indication: MEDICAL DIET
  7. CALCIUM [Concomitant]
     Indication: MEDICAL DIET

REACTIONS (2)
  - CONTUSION [None]
  - POSTMENOPAUSAL HAEMORRHAGE [None]
